FAERS Safety Report 4550908-1 (Version None)
Quarter: 2004Q4

REPORT INFORMATION
  Report Type: 
  Country: None (occurrence: None)
  Receive Date: 20041217
  Receipt Date: 20040903
  Transmission Date: 20050328
  Serious: No
  Sender: FDA-Public Use
  Company Number: 2004-BP-07956BP

PATIENT
  Sex: Female

DRUGS (6)
  1. SPIRIVA [Suspect]
     Indication: CHRONIC OBSTRUCTIVE AIRWAYS DISEASE
     Dosage: 18 MCG (18 MCG), IH
     Route: 055
  2. SPIRIVA [Suspect]
  3. LIPITOR [Concomitant]
  4. ASPIRIN [Concomitant]
  5. FOSAMAX [Concomitant]
  6. ESTRADIOL [Concomitant]

REACTIONS (4)
  - COUGH [None]
  - DRUG INEFFECTIVE [None]
  - PULMONARY CONGESTION [None]
  - WHEEZING [None]
